FAERS Safety Report 8763855 (Version 2)
Quarter: 2012Q4

REPORT INFORMATION
  Report Type: 
  Country: US (occurrence: US)
  Receive Date: 20120831
  Receipt Date: 20120831
  Transmission Date: 20130627
  Serious: Yes (Other)
  Sender: FDA-Public Use
  Company Number: PHEH2012US014971

PATIENT
  Age: 60 Year
  Sex: Female
  Weight: 70.3 kg

DRUGS (1)
  1. EXJADE [Suspect]
     Indication: IRON OVERLOAD
     Dosage: 500 mg, BID
     Route: 048
     Dates: start: 20120725, end: 20120814

REACTIONS (4)
  - Meniere^s disease [Recovered/Resolved]
  - Deafness [Recovered/Resolved]
  - Tinnitus [Recovered/Resolved]
  - Diarrhoea [Unknown]
